FAERS Safety Report 15232707 (Version 2)
Quarter: 2018Q3

REPORT INFORMATION
  Report Type: Spontaneous
  Country: US (occurrence: US)
  Receive Date: 20180802
  Receipt Date: 20180914
  Transmission Date: 20181010
  Serious: Yes (Life-Threatening, Other)
  Sender: FDA-Public Use
  Company Number: US-GILEAD-2018-0352887

PATIENT
  Age: 69 Year
  Sex: Male
  Weight: 105.21 kg

DRUGS (1)
  1. VOSEVI [Suspect]
     Active Substance: SOFOSBUVIR\VELPATASVIR\VOXILAPREVIR
     Indication: CHRONIC HEPATITIS C
     Dosage: UNK
     Route: 065
     Dates: start: 201708, end: 201711

REACTIONS (1)
  - Treatment failure [Unknown]

NARRATIVE: CASE EVENT DATE: 201709
